FAERS Safety Report 12579172 (Version 1)
Quarter: 2016Q3

REPORT INFORMATION
  Report Type: Spontaneous
  Country: US (occurrence: US)
  Receive Date: 20160721
  Receipt Date: 20160721
  Transmission Date: 20161109
  Serious: No
  Sender: FDA-Public Use
  Company Number: US-PFIZER INC-3209906

PATIENT
  Age: 71 Year
  Sex: Male

DRUGS (4)
  1. GENTAMICIN SULFATE. [Suspect]
     Active Substance: GENTAMICIN SULFATE
     Indication: SINUSITIS
     Dosage: UNK
     Route: 045
     Dates: start: 20160203, end: 20160215
  2. LEVAQUIN [Concomitant]
     Active Substance: LEVOFLOXACIN
     Indication: SINUSITIS
     Dosage: 500 MG, UNK
     Route: 048
  3. SODIUM CHLORIDE. [Suspect]
     Active Substance: SODIUM CHLORIDE
     Indication: SINUSITIS
     Dosage: UNK
     Route: 045
     Dates: start: 20160203, end: 20160215
  4. DEXAMETHASONE. [Suspect]
     Active Substance: DEXAMETHASONE
     Indication: SINUSITIS
     Dosage: UNK
     Route: 045
     Dates: start: 20160203, end: 20160215

REACTIONS (6)
  - Candida infection [Recovered/Resolved]
  - Erythema [Recovered/Resolved]
  - Wrong technique in product usage process [Recovering/Resolving]
  - Off label use [Recovering/Resolving]
  - Swelling [Recovering/Resolving]
  - Incorrect route of drug administration [Recovering/Resolving]

NARRATIVE: CASE EVENT DATE: 2016
